FAERS Safety Report 5431817-2 (Version None)
Quarter: 2007Q3

REPORT INFORMATION
  Report Type: 
  Country: None (occurrence: None)
  Receive Date: 20070731
  Receipt Date: 20070525
  Transmission Date: 20080115
  Serious: No
  Sender: FDA-Public Use
  Company Number: US200706002614

PATIENT
  Age: 46 Year
  Sex: Female

DRUGS (6)
  1. BYETTA [Suspect]
     Indication: WEIGHT DECREASED
  2. EXENATIDE (EXENATIDE) [Concomitant]
  3. FORTEO [Concomitant]
  4. HUMALOG [Concomitant]
  5. CYMBALTA [Concomitant]
  6. ALERIC (LORATADINE) [Concomitant]

REACTIONS (1)
  - WEIGHT INCREASED [None]
